FAERS Safety Report 7391580-5 (Version None)
Quarter: 2011Q2

REPORT INFORMATION
  Report Type: 
  Country: None (occurrence: None)
  Receive Date: 20110404
  Receipt Date: 20110322
  Transmission Date: 20111010
  Serious: Yes (Hospitalization, Other)
  Sender: FDA-Public Use
  Company Number: PHHO2009TW15774

PATIENT
  Sex: Female
  Weight: 43 kg

DRUGS (12)
  1. IMDUR [Suspect]
  2. SENNOSIDE A+B CALCIUM [Concomitant]
  3. BLINDED PLACEBO [Suspect]
     Indication: CARDIAC FAILURE ACUTE
     Dosage: CODE NOT BROKEN
     Route: 048
     Dates: start: 20091128, end: 20100111
  4. METOCLOPRAMIDE [Concomitant]
  5. ALLOPURINOL [Concomitant]
     Indication: GOUT
  6. CAPTOPRIL [Concomitant]
     Indication: HYPERTENSION
  7. CARVEDILOL [Concomitant]
     Indication: CARDIAC FAILURE
  8. FLUVASTATIN [Concomitant]
  9. MOSAPRIDE [Concomitant]
  10. BLINDED ALISKIREN [Suspect]
     Indication: CARDIAC FAILURE ACUTE
     Dosage: CODE NOT BROKEN
     Route: 048
     Dates: start: 20091128, end: 20100111
  11. DIOVAN [Suspect]
  12. BLINDED NO TREATMENT RECEIVED [Suspect]
     Indication: CARDIAC FAILURE ACUTE
     Dosage: CODE NOT BROKEN
     Route: 048
     Dates: start: 20091128, end: 20100111

REACTIONS (29)
  - HYPOTENSION [None]
  - FATIGUE [None]
  - DYSPNOEA [None]
  - DYSPNOEA EXERTIONAL [None]
  - RENAL IMPAIRMENT [None]
  - SINUS TACHYCARDIA [None]
  - CARDIAC FAILURE [None]
  - BLOOD UREA INCREASED [None]
  - DISEASE PROGRESSION [None]
  - CARDIAC FAILURE CONGESTIVE [None]
  - DYSPNOEA PAROXYSMAL NOCTURNAL [None]
  - CARDIOMEGALY [None]
  - LUNG INFILTRATION [None]
  - DECREASED APPETITE [None]
  - PULMONARY HYPERTENSION [None]
  - BLOOD SODIUM INCREASED [None]
  - CHEST DISCOMFORT [None]
  - ORTHOPNOEA [None]
  - PULMONARY CONGESTION [None]
  - CARDIAC FAILURE ACUTE [None]
  - FLUID OVERLOAD [None]
  - PULMONARY OEDEMA [None]
  - RALES [None]
  - SYNCOPE [None]
  - DIZZINESS [None]
  - PLEURAL EFFUSION [None]
  - DRUG INEFFECTIVE [None]
  - OEDEMA [None]
  - BREATH SOUNDS ABNORMAL [None]
